FAERS Safety Report 5922434-6 (Version None)
Quarter: 2008Q3

REPORT INFORMATION
  Report Type: 
  Country: None (occurrence: None)
  Receive Date: 20080909
  Receipt Date: 20080523
  Transmission Date: 20090109
  Serious: Yes (Hospitalization)
  Sender: FDA-Public Use
  Company Number: 163-20785-08051430

PATIENT
  Age: 78 Year
  Sex: Female

DRUGS (2)
  1. THALOMID [Suspect]
     Indication: MULTIPLE MYELOMA
     Dosage: 100 MG, 1 IN 1 D, ORAL : 50MG-100MG, DAILY, ORAL
     Route: 048
     Dates: start: 20071203, end: 20080301
  2. THALOMID [Suspect]
     Indication: MULTIPLE MYELOMA
     Dosage: 100 MG, 1 IN 1 D, ORAL : 50MG-100MG, DAILY, ORAL
     Route: 048
     Dates: start: 20080328, end: 20080501

REACTIONS (1)
  - THROMBOSIS [None]
